FAERS Safety Report 7198955-8 (Version None)
Quarter: 2010Q4

REPORT INFORMATION
  Report Type: 
  Country: None (occurrence: None)
  Receive Date: 20101227
  Receipt Date: 20101216
  Transmission Date: 20110411
  Serious: Yes (Life-Threatening, Hospitalization)
  Sender: FDA-Public Use
  Company Number: US-BRISTOL-MYERS SQUIBB COMPANY-15453640

PATIENT
  Age: 65 Year
  Sex: Male
  Weight: 66 kg

DRUGS (8)
  1. CETUXIMAB [Suspect]
     Indication: HEAD AND NECK CANCER
     Dosage: RECENT INFO 13DEC2010
     Route: 042
     Dates: start: 20101018, end: 20101213
  2. CISPLATIN [Suspect]
     Indication: HEAD AND NECK CANCER
     Dosage: RECENT INFO 06DEC2010
     Route: 042
     Dates: start: 20101018, end: 20101206
  3. FLUOROURACIL [Suspect]
     Indication: HEAD AND NECK CANCER
     Dosage: RECENT INFO 10DEC2010
     Route: 042
     Dates: start: 20101018, end: 20101213
  4. EMEND [Concomitant]
     Indication: PROPHYLAXIS
     Dosage: ALSO ORAL ON 19OCT2010
     Route: 042
     Dates: start: 20101018
  5. DECADRON [Concomitant]
     Indication: PROPHYLAXIS
     Route: 048
     Dates: start: 20101017
  6. IMODIUM [Concomitant]
     Dates: start: 20101029
  7. COMPAZINE [Concomitant]
     Indication: PROPHYLAXIS
     Dates: start: 20101029
  8. ACETAMINOPHEN [Concomitant]
     Indication: PROPHYLAXIS
     Dates: start: 20101029

REACTIONS (2)
  - ABDOMINAL PAIN [None]
  - DIARRHOEA [None]
